FAERS Safety Report 4331703-5 (Version None)
Quarter: 2004Q2

REPORT INFORMATION
  Report Type: 
  Country: None (occurrence: None)
  Receive Date: 20040405
  Receipt Date: 20030319
  Transmission Date: 20050107
  Serious: No
  Sender: FDA-Public Use
  Company Number: US-GLAXOSMITHKLINE-A0400995A

PATIENT
  Sex: Female

DRUGS (5)
  1. FLOVENT [Suspect]
     Indication: ILL-DEFINED DISORDER
     Route: 055
  2. FLOVENT [Concomitant]
     Route: 055
  3. SEREVENT [Concomitant]
     Route: 055
  4. ALBUTEROL [Concomitant]
     Route: 065
  5. ALLERGY MEDICATION [Concomitant]
     Route: 065

REACTIONS (2)
  - PULMONARY CONGESTION [None]
  - WHEEZING [None]
